FAERS Safety Report 7121488-1 (Version None)
Quarter: 2010Q4

REPORT INFORMATION
  Report Type: 
  Country: None (occurrence: None)
  Receive Date: 20101124
  Receipt Date: 20101111
  Transmission Date: 20110411
  Serious: Yes (Other)
  Sender: FDA-Public Use
  Company Number: US-ELI_LILLY_AND_COMPANY-US201011003516

PATIENT
  Age: 50 Year
  Sex: Female

DRUGS (3)
  1. PROZAC [Suspect]
     Indication: DEPRESSION
     Dates: start: 19960101, end: 20090601
  2. ARMOUR THYROID [Concomitant]
     Indication: THYROID THERAPY
  3. VITAMINS [Concomitant]
     Indication: SUPPLEMENTATION THERAPY

REACTIONS (4)
  - BLOOD CHOLESTEROL INCREASED [None]
  - DRUG INEFFECTIVE [None]
  - RADICAL HYSTERECTOMY [None]
  - SUICIDE ATTEMPT [None]
